FAERS Safety Report 21866884 (Version 1)
Quarter: 2023Q1

REPORT INFORMATION
  Report Type: Spontaneous
  Country: US (occurrence: US)
  Receive Date: 20230116
  Receipt Date: 20230116
  Transmission Date: 20230418
  Serious: Yes (Death, Other)
  Sender: FDA-Public Use
  Company Number: US-BRISTOL-MYERS SQUIBB COMPANY-2023-006019

PATIENT
  Age: 68 Year
  Sex: Male

DRUGS (1)
  1. POMALYST [Suspect]
     Active Substance: POMALIDOMIDE
     Indication: Plasma cell myeloma
     Dosage: TAKE 1 CAPSULE BY MOUTH DAILY WITH WATER, WITH OR W/O FOOD, AT ABOUT THE SAME TIME EACH DAY. SWALLOW
     Route: 048
     Dates: start: 20210426

REACTIONS (1)
  - Death [Fatal]

NARRATIVE: CASE EVENT DATE: 20230111
